FAERS Safety Report 8596180-7 (Version None)
Quarter: 2012Q3

REPORT INFORMATION
  Report Type: 
  Country: None (occurrence: None)
  Receive Date: 20120815
  Receipt Date: 20120808
  Transmission Date: 20120928
  Serious: Yes (Death)
  Sender: FDA-Public Use
  Company Number: CA-GLAXOSMITHKLINE-A0988856A

PATIENT
  Sex: Female

DRUGS (11)
  1. CRESTOR [Concomitant]
     Dosage: 20MG PER DAY
     Route: 065
  2. VOTRIENT [Suspect]
     Indication: RENAL CANCER METASTATIC
     Dosage: 800MG PER DAY
     Route: 048
     Dates: start: 20120612
  3. SENOKOT [Concomitant]
     Dosage: 2TAB AS REQUIRED
     Route: 065
  4. ASPIRIN [Concomitant]
     Dosage: 81MG PER DAY
     Route: 065
  5. FUROSEMIDE [Concomitant]
     Dosage: 20MG PER DAY
     Route: 065
  6. RAMIPRIL [Concomitant]
     Dosage: 2.5MG PER DAY
     Route: 065
  7. BISOPROLOL FUMARATE [Concomitant]
     Dosage: 5MG PER DAY
     Route: 048
  8. HYDROMORPHONE HYDROCHLORIDE [Concomitant]
     Route: 065
  9. AMIODARONE [Concomitant]
     Route: 048
  10. INSULIN [Concomitant]
     Route: 065
  11. FERROUS GLUCONATE [Concomitant]
     Dosage: 600MG PER DAY
     Route: 065

REACTIONS (1)
  - DEATH [None]
